FAERS Safety Report 5050105-X (Version None)
Quarter: 2006Q3

REPORT INFORMATION
  Report Type: 
  Country: None (occurrence: None)
  Receive Date: 20060707
  Receipt Date: 20060621
  Transmission Date: 20061208
  Serious: Yes (Other)
  Sender: FDA-Public Use
  Company Number: GB-2006-016190

PATIENT
  Age: 59 Year
  Sex: Male
  Weight: 61.2 kg

DRUGS (4)
  1. FLUDARABINE [Suspect]
     Indication: WALDENSTROM'S MACROGLOBULINAEMIA
     Dosage: 40 MG, 1X/DAY, ORAL
     Route: 048
     Dates: start: 20060228, end: 20060426
  2. ACYCLOVIR [Concomitant]
  3. CO-TRIMOXAZOLE (CO-TRIMOXAZOLE) [Concomitant]
  4. CYCLOPHOSPHAMIDE [Concomitant]

REACTIONS (3)
  - EYE HAEMORRHAGE [None]
  - FALL [None]
  - NERVOUS SYSTEM DISORDER [None]
